FAERS Safety Report 15306230 (Version 1)
Quarter: 2018Q3

REPORT INFORMATION
  Report Type: Spontaneous
  Country: US (occurrence: US)
  Receive Date: 20180822
  Receipt Date: 20180822
  Transmission Date: 20181010
  Serious: No
  Sender: FDA-Public Use
  Company Number: US-PFIZER INC-2018337908

PATIENT
  Age: 70 Year
  Sex: Male
  Weight: 75 kg

DRUGS (2)
  1. XELJANZ XR [Suspect]
     Active Substance: TOFACITINIB CITRATE
     Indication: RHEUMATOID ARTHRITIS
     Dosage: 11 MG, 1X/DAY
     Route: 048
     Dates: start: 20180811
  2. TYLENOL 8HR [Concomitant]
     Active Substance: ACETAMINOPHEN
     Dosage: ONCE IN WHILE IN A WEEK

REACTIONS (5)
  - Myalgia [Unknown]
  - Cough [Unknown]
  - Chills [Unknown]
  - Back pain [Unknown]
  - Gait disturbance [Unknown]
